FAERS Safety Report 8829335 (Version 1)
Quarter: 2012Q4

REPORT INFORMATION
  Report Type: Spontaneous
  Country: BR (occurrence: None)
  Receive Date: 20121004
  Receipt Date: 20121004
  Transmission Date: 20130627
  Serious: Yes (Hospitalization)
  Sender: FDA-Public Use
  Company Number: IMP_06008_2012

PATIENT
  Age: 15 Year
  Sex: Female

DRUGS (2)
  1. CABERGOLINE [Suspect]
     Indication: HYPERPROLACTINAEMIA
     Dosage: (DF), (1.5 MG 1X/WEEK), 1 MG 1X/WEEK), NOT CONTINUING
  2. CABERGOLINE [Suspect]
     Indication: HYPERPROLACTINAEMIA

REACTIONS (4)
  - Headache [None]
  - Tumour haemorrhage [None]
  - Neoplasm [None]
  - Stress [None]
